FAERS Safety Report 22068357 (Version 6)
Quarter: 2023Q2

REPORT INFORMATION
  Report Type: Spontaneous
  Country: HU (occurrence: HU)
  Receive Date: 20230307
  Receipt Date: 20230626
  Transmission Date: 20230722
  Serious: Yes (Hospitalization, Other)
  Sender: FDA-Public Use
  Company Number: HU-HALEON-HUCH2023HLN008335

PATIENT
  Sex: Male
  Weight: 0.99 kg

DRUGS (26)
  1. METOPROLOL [Suspect]
     Active Substance: METOPROLOL
     Indication: Foetal exposure during pregnancy
     Dosage: MATERNAL EXPOSURE DURING PREGNANCY: 25 MG
     Route: 064
  2. METOPROLOL [Suspect]
     Active Substance: METOPROLOL
     Dosage: MATERNAL EXPOSURE DURING PREGNANCY: 2 X 25 MG
     Route: 064
  3. METOPROLOL [Suspect]
     Active Substance: METOPROLOL
     Dosage: MATERNAL EXPOSURE DURING PREGNANCY: 3 X 25 MG
     Route: 064
  4. PANTOTHENIC ACID [Suspect]
     Active Substance: PANTOTHENIC ACID
     Indication: Foetal exposure during pregnancy
     Dosage: MATERNAL EXPOSURE DURING PREGNANCY : UNKNOWN
     Route: 064
  5. VITAMIN B1 [Suspect]
     Active Substance: THIAMINE HYDROCHLORIDE
     Indication: Foetal exposure during pregnancy
     Dosage: MATERNAL EXPOSURE DURING PREGNANCY: UNK
     Route: 064
  6. NIACIN [Suspect]
     Active Substance: NIACIN
     Indication: Foetal exposure during pregnancy
     Dosage: MATERNAL EXPOSURE DURING PREGNANCY: UNK
     Route: 064
  7. VITAMIN C [Suspect]
     Active Substance: ASCORBIC ACID
     Indication: Foetal exposure during pregnancy
     Dosage: MATERNAL EXPOSURE DURING PREGNANCY: UNK
     Route: 064
  8. VERAPAMIL [Suspect]
     Active Substance: VERAPAMIL HYDROCHLORIDE
     Indication: Foetal exposure during pregnancy
     Dosage: MATERNAL EXPOSURE DURING PREGNANCY: 40 MG (2 X 40 MG)
     Route: 064
  9. LEVOMEFOLATE CALCIUM [Suspect]
     Active Substance: LEVOMEFOLATE CALCIUM
     Indication: Foetal exposure during pregnancy
     Dosage: MATERNAL EXPOSURE DURING PREGNANCY: UNK
     Route: 064
  10. DEXAMETHASONE [Suspect]
     Active Substance: DEXAMETHASONE
     Indication: Foetal exposure during pregnancy
     Dosage: MATERNAL EXPOSURE DURING PREGNANCY: 6 MG, FOUR TIMES
     Route: 064
  11. TACROLIMUS [Suspect]
     Active Substance: TACROLIMUS
     Indication: Foetal exposure during pregnancy
     Dosage: MATERNAL EXPOSURE DURING PREGNANCY: 4.5 MG, QD
     Route: 064
  12. PREDNISOLONE [Suspect]
     Active Substance: PREDNISOLONE
     Indication: Foetal exposure during pregnancy
     Dosage: MATERNAL EXPOSURE DURING PREGNANCY: 7.5 MG, QD
     Route: 064
  13. ENOXAPARIN SODIUM [Suspect]
     Active Substance: ENOXAPARIN SODIUM
     Indication: Foetal exposure during pregnancy
     Dosage: MATERNAL EXPOSURE DURING PREGNANCY: 6 ML
     Route: 064
  14. VITAMIN B2 [Suspect]
     Active Substance: RIBOFLAVIN
     Indication: Foetal exposure during pregnancy
     Dosage: MATERNAL EXPOSURE DURING PREGNANCY: UNK
     Route: 064
  15. IODINE [Suspect]
     Active Substance: IODINE
     Indication: Foetal exposure during pregnancy
     Dosage: MATERNAL EXPOSURE DURING PREGNANCY: UNK
     Route: 064
  16. VITAMIN D3 [Suspect]
     Active Substance: CHOLECALCIFEROL
     Indication: Foetal exposure during pregnancy
     Dosage: MATERNAL EXPOSURE DURING PREGNANCY: UNK
     Route: 064
  17. DOCONEXENT [Suspect]
     Active Substance: DOCONEXENT
     Indication: Foetal exposure during pregnancy
     Dosage: MATERNAL EXPOSURE DURING PREGNANCY: UNK
     Route: 064
  18. NIFEDIPINE [Suspect]
     Active Substance: NIFEDIPINE
     Indication: Foetal exposure during pregnancy
     Dosage: MATERNAL EXPOSURE DURING PREGNANCY: 20 MG (2 X 20 MG)
     Route: 064
  19. METHYLDOPA [Suspect]
     Active Substance: METHYLDOPA
     Indication: Foetal exposure during pregnancy
     Dosage: MATERNAL EXPOSURE DURING PREGNANCY: 250 MG (3 X 250 MG, QD)
     Route: 064
  20. METHYLDOPA [Suspect]
     Active Substance: METHYLDOPA
     Dosage: MATERNAL EXPOSURE DURING PREGNANCY: 250 MG (4 X 250 MG, QD)
     Route: 064
  21. BIOTIN [Suspect]
     Active Substance: BIOTIN
     Indication: Foetal exposure during pregnancy
     Dosage: MATERNAL EXPOSURE DURING PREGNANCY: UNK
     Route: 064
  22. ASPIRIN [Suspect]
     Active Substance: ASPIRIN
     Indication: Foetal exposure during pregnancy
     Dosage: MATERNAL EXPOSURE DURING PREGNANCY: 100 MG, QD
     Route: 064
  23. FOLIC ACID [Suspect]
     Active Substance: FOLIC ACID
     Indication: Foetal exposure during pregnancy
     Dosage: MATERNAL EXPOSURE DURING PREGNANCY: UNK
     Route: 064
  24. VITAMIN B12 [Suspect]
     Active Substance: CYANOCOBALAMIN
     Indication: Foetal exposure during pregnancy
     Dosage: MATERNAL EXPOSURE DURING PREGNANCY: UNK
     Route: 064
  25. VITAMIN B6 [Suspect]
     Active Substance: PYRIDOXINE HYDROCHLORIDE
     Indication: Foetal exposure during pregnancy
     Dosage: MATERNAL EXPOSURE DURING PREGNANCY: UNK
     Route: 064
  26. .ALPHA.-TOCOPHEROL ACETATE [Suspect]
     Active Substance: .ALPHA.-TOCOPHEROL ACETATE
     Indication: Foetal exposure during pregnancy
     Dosage: MATERNAL EXPOSURE DURING PREGNANCY: UNK
     Route: 064

REACTIONS (8)
  - Low birth weight baby [Unknown]
  - Premature baby [Unknown]
  - Intraventricular haemorrhage neonatal [Unknown]
  - Retinopathy of prematurity [Unknown]
  - Diastolic dysfunction [Unknown]
  - Foetal growth restriction [Unknown]
  - Foetal vascular malperfusion [Unknown]
  - Foetal exposure during pregnancy [Unknown]
